FAERS Safety Report 16708625 (Version 1)
Quarter: 2019Q3

REPORT INFORMATION
  Report Type: Spontaneous
  Country: DE (occurrence: DE)
  Receive Date: 20190816
  Receipt Date: 20190816
  Transmission Date: 20191004
  Serious: Yes (Other)
  Sender: FDA-Public Use
  Company Number: DE-TEVA-2019-DE-1090634

PATIENT
  Sex: Female

DRUGS (1)
  1. VIGIL (MODAFINIL) [Suspect]
     Active Substance: MODAFINIL
     Indication: SLEEP ATTACKS
     Dosage: 100 MILLIGRAM DAILY; USED FOR 3 DAYS
     Route: 048

REACTIONS (4)
  - Loss of libido [Recovered/Resolved]
  - Monoplegia [Recovered/Resolved]
  - Gait inability [Recovered/Resolved]
  - Asthenia [Recovered/Resolved]
